FAERS Safety Report 4846890-X (Version None)
Quarter: 2005Q4

REPORT INFORMATION
  Report Type: 
  Country: None (occurrence: None)
  Receive Date: 20051202
  Receipt Date: 20051121
  Transmission Date: 20060501
  Serious: Yes (Hospitalization)
  Sender: FDA-Public Use
  Company Number: 12909

PATIENT
  Age: 79 Year
  Sex: Male

DRUGS (5)
  1. CISPLATIN [Suspect]
     Indication: NON-SMALL CELL LUNG CANCER
     Dosage: 81 MG DAILY IV
     Route: 042
     Dates: start: 20051003, end: 20051003
  2. VINORELBINE TARTRATE [Suspect]
     Indication: NON-SMALL CELL LUNG CANCER
     Dosage: 40 MG DAILY IV
     Route: 042
     Dates: start: 20051003, end: 20051012
  3. PANTOPRAZOLE [Concomitant]
  4. CYCLIZINE [Concomitant]
  5. ATROVENT [Concomitant]

REACTIONS (3)
  - CREPITATIONS [None]
  - INTESTINAL OBSTRUCTION [None]
  - NEUTROPENIC SEPSIS [None]
